FAERS Safety Report 17424506 (Version 1)
Quarter: 2020Q1

REPORT INFORMATION
  Report Type: Report from Study
  Country: None (occurrence: PR)
  Receive Date: 20200217
  Receipt Date: 20200217
  Transmission Date: 20200409
  Serious: Yes (Other)
  Sender: FDA-Public Use
  Company Number: PR-ABBVIE-20K-131-3276075-00

PATIENT
  Sex: Female
  Weight: 61.74 kg

DRUGS (9)
  1. PREDNISONE. [Concomitant]
     Active Substance: PREDNISONE
     Indication: INFLAMMATION
     Dosage: 7 DAYS
     Route: 048
     Dates: start: 2010
  2. CLONAZEPAMB [Concomitant]
     Indication: SLEEP DISORDER THERAPY
     Route: 048
     Dates: start: 2018
  3. PREDNISONE. [Concomitant]
     Active Substance: PREDNISONE
     Dosage: 7 DAYS
     Route: 048
     Dates: start: 2010
  4. ENALAPRIL [Concomitant]
     Active Substance: ENALAPRIL
     Indication: HYPERTENSION
     Route: 048
     Dates: start: 2012
  5. HYDROCHLOROTHIAZIDE. [Concomitant]
     Active Substance: HYDROCHLOROTHIAZIDE
     Indication: DIURETIC THERAPY
     Route: 048
     Dates: start: 2012
  6. RANITIDINE. [Concomitant]
     Active Substance: RANITIDINE
     Indication: GASTRIC DISORDER
     Route: 048
     Dates: start: 2017
  7. HUMIRA [Suspect]
     Active Substance: ADALIMUMAB
     Indication: RHEUMATOID ARTHRITIS
     Route: 058
     Dates: start: 201809
  8. OMEPRAZOLE. [Concomitant]
     Active Substance: OMEPRAZOLE
     Indication: GASTRIC DISORDER
     Route: 048
     Dates: start: 2017
  9. PREDNISONE. [Concomitant]
     Active Substance: PREDNISONE
     Dosage: DAILY
     Route: 048
     Dates: start: 2010

REACTIONS (4)
  - Arthralgia [Recovering/Resolving]
  - Gastrointestinal inflammation [Recovering/Resolving]
  - Unevaluable event [Recovered/Resolved]
  - Gastrointestinal pain [Recovering/Resolving]

NARRATIVE: CASE EVENT DATE: 202001
